FAERS Safety Report 18159728 (Version 9)
Quarter: 2020Q4

REPORT INFORMATION
  Report Type: Report from Study
  Country: None (occurrence: NL)
  Receive Date: 20200818
  Receipt Date: 20201229
  Transmission Date: 20210113
  Serious: Yes (Hospitalization, Other)
  Sender: FDA-Public Use
  Company Number: NL-ABBVIE-20K-114-3446953-00

PATIENT
  Age: 54 Year
  Sex: Female
  Weight: 47.5 kg

DRUGS (10)
  1. DUODOPA [Suspect]
     Active Substance: CARBIDOPA\LEVODOPA
     Dosage: MD: 7.1 ML, CD: 5.5 ML/H, ED: 1.0 ML; 16 HOUR ADMINISTRATION
     Route: 050
  2. DUODOPA [Suspect]
     Active Substance: CARBIDOPA\LEVODOPA
     Dosage: MD: 6.1 ML, CD: 4.6 ML/H, ED: 1.0 ML; 16 HOUR ADMINISTRATION
     Route: 050
  3. DUODOPA [Suspect]
     Active Substance: CARBIDOPA\LEVODOPA
     Dosage: MD: 6.1 ML, CD: 4.9 ML/H, ED: 1.0 ML; 16 HOUR ADMINISTRATION
     Route: 050
  4. DUODOPA [Suspect]
     Active Substance: CARBIDOPA\LEVODOPA
     Dosage: MD: 5.8 ML, CD: 4.5 ML/H, ED: 0.8 ML; 16 HOUR ADMINISTRATION
     Route: 050
  5. DUODOPA [Suspect]
     Active Substance: CARBIDOPA\LEVODOPA
     Dosage: MD: 5.8 ML, CD: 4.5 ML/H, ED: 0.0 ML; REMAINS AT 16 HOURS
     Route: 050
  6. DUODOPA [Suspect]
     Active Substance: CARBIDOPA\LEVODOPA
     Dosage: MD: 6.1ML; CD:4.5ML/H ED:0.0ML REMAINS AT 16 HOURS
     Route: 050
  7. DUODOPA [Suspect]
     Active Substance: CARBIDOPA\LEVODOPA
     Indication: PARKINSON^S DISEASE
     Dosage: MD: 6.1, CD: 4.6, ED: 1.0; 16 HOUR ADMINISTRATION
     Route: 050
  8. DUODOPA [Suspect]
     Active Substance: CARBIDOPA\LEVODOPA
     Dosage: MD: 5.8 ML, CD: 4.1 ML/H, ED: 0.0 ML; REMAINS AT 16 HOURS
     Route: 050
  9. DUODOPA [Suspect]
     Active Substance: CARBIDOPA\LEVODOPA
     Dosage: MD: 6.2 ML, CD: 4.6 ML/H, ED: 1.0 ML; 16 HOUR ADMINISTRATION
     Route: 050
     Dates: start: 20160324
  10. DUODOPA [Suspect]
     Active Substance: CARBIDOPA\LEVODOPA
     Dosage: MD: 6.1 ML, CD: 5.5 ML/H, ED: 1.0 ML; 16 HOUR ADMINISTRATION
     Route: 050

REACTIONS (16)
  - Stoma site inflammation [Recovered/Resolved]
  - Psychotic disorder [Recovered/Resolved]
  - Device dislocation [Unknown]
  - Stoma site discomfort [Recovered/Resolved]
  - Device difficult to use [Unknown]
  - On and off phenomenon [Unknown]
  - Hallucination [Not Recovered/Not Resolved]
  - Muscle rigidity [Not Recovered/Not Resolved]
  - Device breakage [Unknown]
  - Patient-device incompatibility [Unknown]
  - Aggression [Not Recovered/Not Resolved]
  - Dyskinesia [Not Recovered/Not Resolved]
  - Mental disorder [Not Recovered/Not Resolved]
  - Drug abuse [Recovered/Resolved]
  - Malaise [Not Recovered/Not Resolved]
  - Bradykinesia [Not Recovered/Not Resolved]

NARRATIVE: CASE EVENT DATE: 2020
